FAERS Safety Report 16350730 (Version 1)
Quarter: 2019Q2

REPORT INFORMATION
  Report Type: Report from Study
  Country: ES (occurrence: ES)
  Receive Date: 20190524
  Receipt Date: 20190524
  Transmission Date: 20190711
  Serious: Yes (Hospitalization)
  Sender: FDA-Public Use
  Company Number: ES-TEVA-2019-ES-1053673

PATIENT
  Age: 50 Year
  Sex: Female

DRUGS (4)
  1. ATENOLOL. [Suspect]
     Active Substance: ATENOLOL
     Indication: HYPERTENSION
     Dosage: 50 MG DIA
     Route: 048
     Dates: start: 20120101
  2. ENALAPRIL [Suspect]
     Active Substance: ENALAPRIL
     Indication: HYPERTENSION
     Dosage: 20MG CADA 12 HORAS
     Route: 048
     Dates: start: 20120101
  3. POTASION 600 MG CAPSULAS DURAS , 500 C?PSULAS [Suspect]
     Active Substance: POTASSIUM CHLORIDE
     Dosage: 1 CP DIA
     Route: 048
     Dates: start: 20180406, end: 20180408
  4. EDEMOX [ACETAZOLAMIDE] [Suspect]
     Active Substance: ACETAZOLAMIDE
     Indication: GLAUCOMA
     Dosage: 625 MILLIGRAM DAILY; 1-1-1/2
     Route: 048
     Dates: start: 20180406

REACTIONS (2)
  - Bradycardia [Recovered/Resolved]
  - Hyperkalaemia [Recovered/Resolved]

NARRATIVE: CASE EVENT DATE: 20180406
